FAERS Safety Report 9587441 (Version 2)
Quarter: 2013Q4

REPORT INFORMATION
  Report Type: Report from Study
  Country: JP (occurrence: JP)
  Receive Date: 20131003
  Receipt Date: 20131107
  Transmission Date: 20140711
  Serious: Yes (Other)
  Sender: FDA-Public Use
  Company Number: PHHY2013JP110097

PATIENT
  Age: 42 Year
  Sex: Male

DRUGS (3)
  1. AMN107 [Suspect]
     Indication: CHRONIC MYELOID LEUKAEMIA
     Dosage: 400 MG, BID
     Route: 048
     Dates: start: 20100216, end: 20100723
  2. AMN107 [Suspect]
     Dosage: 400 MG, BID
     Route: 048
     Dates: start: 20100729, end: 20120814
  3. AMN107 [Suspect]
     Dosage: 300 MG, BID
     Route: 048
     Dates: start: 20120815

REACTIONS (2)
  - Electrocardiogram QT prolonged [Recovered/Resolved]
  - Hypertension [Recovering/Resolving]
